FAERS Safety Report 5317625-1 (Version None)
Quarter: 2007Q2

REPORT INFORMATION
  Report Type: 
  Country: None (occurrence: None)
  Receive Date: 20070507
  Receipt Date: 20070425
  Transmission Date: 20071010
  Serious: Yes (Hospitalization)
  Sender: FDA-Public Use
  Company Number: PHBS2007DE07424

PATIENT
  Age: 74 Year
  Sex: Male

DRUGS (7)
  1. CARBAMAZEPINE [Suspect]
     Indication: BIPOLAR I DISORDER
  2. CLOMIPRAMINE HCL [Concomitant]
     Dosage: 175 MG/DAY
  3. TYLENOL W/ CODEINE NO. 3 [Concomitant]
     Dosage: 75 MG/DAY
  4. LORAZEPAM [Concomitant]
     Dosage: 0.5 MG/DAY
  5. SERTRALINE [Concomitant]
  6. MIRTAZAPINE [Concomitant]
  7. VENLAFAXINE HCL [Concomitant]

REACTIONS (6)
  - DELUSION [None]
  - DRUG WITHDRAWAL SYNDROME [None]
  - INSOMNIA [None]
  - MANIA [None]
  - PSYCHOMOTOR HYPERACTIVITY [None]
  - SPEECH DISORDER [None]
